FAERS Safety Report 7016523-5 (Version None)
Quarter: 2010Q3

REPORT INFORMATION
  Report Type: 
  Country: None (occurrence: None)
  Receive Date: 20100909
  Receipt Date: 20100802
  Transmission Date: 20110219
  Serious: Yes (Other)
  Sender: FDA-Public Use
  Company Number: 2010SP041991

PATIENT
  Age: 20 Year
  Sex: Male

DRUGS (3)
  1. SAPHRIS [Suspect]
     Indication: BIPOLAR DISORDER
     Dosage: 10 MG;QD;SL
     Route: 060
     Dates: start: 20100701
  2. SAPHRIS [Suspect]
     Indication: PSYCHOTIC DISORDER
     Dosage: 10 MG;QD;SL
     Route: 060
     Dates: start: 20100701
  3. CLOZARIL (CON.) [Concomitant]

REACTIONS (2)
  - AKATHISIA [None]
  - INAPPROPRIATE SCHEDULE OF DRUG ADMINISTRATION [None]
